FAERS Safety Report 20207392 (Version 2)
Quarter: 2022Q2

REPORT INFORMATION
  Report Type: Spontaneous
  Country: DE (occurrence: DE)
  Receive Date: 20211220
  Receipt Date: 20220407
  Transmission Date: 20220721
  Serious: Yes (Other)
  Sender: FDA-Public Use
  Company Number: DE-LESVI-2021000329

PATIENT
  Age: 74 Year
  Sex: Female

DRUGS (6)
  1. PRAMIPEXOLE [Suspect]
     Active Substance: PRAMIPEXOLE
     Indication: Parkinson^s disease
     Dosage: 1 DOSAGE FORM, QD
     Route: 065
     Dates: start: 20211026
  2. Hericium [Concomitant]
     Indication: Product used for unknown indication
     Dosage: UNK UNK, QD (1X EVERY DAY)
     Route: 065
  3. CALCIUM PANTOTHENATE [Concomitant]
     Active Substance: CALCIUM PANTOTHENATE
     Indication: Prophylaxis
     Dosage: UNK UNK, QD (1X EVERY DAY)
     Route: 065
  4. BLACK CUMIN OIL [Concomitant]
     Indication: Product used for unknown indication
     Dosage: UNK UNK, QD (1X EVERY DAY)
     Route: 065
  5. VITAMIN D3 [Concomitant]
     Active Substance: CHOLECALCIFEROL
     Indication: Product used for unknown indication
     Dosage: UNK UNK, QD (1X EVERY DAY)
     Route: 065
  6. CURCUMIN [Concomitant]
     Active Substance: CURCUMIN
     Indication: Product used for unknown indication
     Dosage: UNK UNK, QD (1X EVERY DAY)
     Route: 065

REACTIONS (15)
  - Poisoning [Unknown]
  - Syncope [Recovering/Resolving]
  - Circulatory collapse [Unknown]
  - Hyperhidrosis [Unknown]
  - Tremor [Unknown]
  - Breath sounds abnormal [Unknown]
  - Nasopharyngitis [Unknown]
  - Diarrhoea [Unknown]
  - Asthenia [Unknown]
  - Nausea [Unknown]
  - Movement disorder [Unknown]
  - Vomiting [Unknown]
  - Epistaxis [Unknown]
  - Abdominal discomfort [Recovering/Resolving]
  - Fall [Unknown]
